FAERS Safety Report 7617692-6 (Version None)
Quarter: 2011Q3

REPORT INFORMATION
  Report Type: 
  Country: None (occurrence: None)
  Receive Date: 20110718
  Receipt Date: 20110708
  Transmission Date: 20111222
  Serious: Yes (Hospitalization, Other)
  Sender: FDA-Public Use
  Company Number: PHHY2011GB61027

PATIENT
  Age: 62 Year
  Sex: Male
  Weight: 72.5 kg

DRUGS (9)
  1. HUMALOG [Concomitant]
     Indication: DIABETES MELLITUS
     Dosage: 1 DF, BID
  2. IRINOTECAN HCL [Suspect]
     Indication: COLORECTAL CANCER METASTATIC
     Dosage: 330 MG, UNK
     Route: 042
     Dates: start: 20110426, end: 20110426
  3. LISINOPRIL [Concomitant]
     Indication: HYPERTENSION
     Dosage: 5 MG, QD
     Route: 048
  4. FERROUS SULFATE TAB [Concomitant]
     Indication: BLOOD IRON DECREASED
     Dosage: 200 MG, BID
     Route: 048
  5. EYE DROPS [Concomitant]
     Indication: RETINOPATHY
     Dosage: UNK
  6. LANSOPRAZOLE [Concomitant]
     Dosage: 30 MG, QD
     Route: 048
  7. FLUOROURACIL [Suspect]
     Indication: COLORECTAL CANCER METASTATIC
     Dosage: UNK
     Route: 042
     Dates: start: 20110426, end: 20110428
  8. MIXTARD HUMAN 70/30 [Concomitant]
     Indication: DIABETES MELLITUS
     Dosage: 1 DF, BID
  9. SIMVASTATIN [Concomitant]
     Indication: HYPERCHOLESTEROLAEMIA
     Dosage: 20 MG, QD
     Route: 048

REACTIONS (1)
  - URINARY RETENTION [None]
